FAERS Safety Report 14022208 (Version 4)
Quarter: 2018Q2

REPORT INFORMATION
  Report Type: Report from Study
  Country: US (occurrence: US)
  Receive Date: 20170928
  Receipt Date: 20180403
  Transmission Date: 20180711
  Serious: Yes (Hospitalization)
  Sender: FDA-Public Use
  Company Number: US-EXELIXIS-XL18417010632

PATIENT
  Age: 78 Year
  Sex: Female
  Weight: 58.96 kg

DRUGS (14)
  1. VIACTIV [Concomitant]
     Active Substance: CALCIUM\VITAMIN D\VITAMIN K5
  2. XL184 [Suspect]
     Active Substance: CABOZANTINIB
     Indication: THYROID CANCER
     Dosage: 50 MG, QD
     Route: 048
     Dates: start: 20120816
  3. BIOGAIA PROBIOTIC [Concomitant]
  4. IMODIUM A-D [Concomitant]
     Active Substance: LOPERAMIDE HYDROCHLORIDE
  5. QUESTRAN [Concomitant]
     Active Substance: CHOLESTYRAMINE
  6. DIGESTIVE ENZYMES [Concomitant]
     Active Substance: UNSPECIFIED INGREDIENT
  7. SYNTHROID [Concomitant]
     Active Substance: LEVOTHYROXINE SODIUM
  8. XL184 [Suspect]
     Active Substance: CABOZANTINIB
     Dosage: 20 MG, QD
     Route: 048
  9. SIMETHICONE (DIMETHICONE) [Concomitant]
     Active Substance: DIMETHICONE
  10. CARBOPLATIN. [Concomitant]
     Active Substance: CARBOPLATIN
  11. FERGON [Concomitant]
     Active Substance: FERROUS GLUCONATE
  12. NABUMETONE. [Concomitant]
     Active Substance: NABUMETONE
  13. METHYLPREDNISOLONE. [Concomitant]
     Active Substance: METHYLPREDNISOLONE
  14. ZOLPIDEM [Concomitant]
     Active Substance: ZOLPIDEM\ZOLPIDEM TARTRATE

REACTIONS (1)
  - Cardiac failure congestive [Recovered/Resolved]

NARRATIVE: CASE EVENT DATE: 20170921
